FAERS Safety Report 6496444-7 (Version None)
Quarter: 2009Q4

REPORT INFORMATION
  Report Type: 
  Country: None (occurrence: None)
  Receive Date: 20091210
  Receipt Date: 20091202
  Transmission Date: 20100525
  Serious: Yes (Hospitalization)
  Sender: FDA-Public Use
  Company Number: 2009US004140

PATIENT
  Age: 22 Year
  Sex: Female

DRUGS (3)
  1. PROGRAF [Suspect]
     Indication: RENAL TRANSPLANT
     Dosage: 4 MG, UID/QD, ORAL
     Route: 048
     Dates: start: 20080101
  2. PREONISOLONE (PREDNISOLONE) [Concomitant]
  3. EVEROLIMUS (EVEROLIMUS) [Concomitant]

REACTIONS (1)
  - AMAUROSIS [None]
